FAERS Safety Report 6213957-3 (Version None)
Quarter: 2009Q2

REPORT INFORMATION
  Report Type: 
  Country: None (occurrence: None)
  Receive Date: 20090604
  Receipt Date: 20090528
  Transmission Date: 20091009
  Serious: Yes (Hospitalization)
  Sender: FDA-Public Use
  Company Number: US-JNJFOC-20090600389

PATIENT
  Sex: Female
  Weight: 68.49 kg

DRUGS (15)
  1. FENTANYL TRANSDERMAL SYSTEM [Suspect]
     Route: 062
  2. FENTANYL TRANSDERMAL SYSTEM [Suspect]
     Route: 062
  3. FENTANYL TRANSDERMAL SYSTEM [Suspect]
     Route: 062
  4. FENTANYL TRANSDERMAL SYSTEM [Suspect]
     Indication: CANCER PAIN
     Route: 062
  5. FENTANYL [Suspect]
     Indication: CANCER PAIN
     Route: 062
  6. ZOMETA [Concomitant]
     Indication: NEOPLASM MALIGNANT
  7. ARIMIDEX [Concomitant]
     Indication: NEOPLASM MALIGNANT
  8. VICODIN [Concomitant]
     Indication: PAIN
  9. TRAMADOL HCL [Concomitant]
     Indication: PAIN
  10. UNKNOWN MEDICATION [Concomitant]
     Indication: GASTRIC DISORDER
     Route: 048
  11. TRIAM [Concomitant]
     Indication: FLUID RETENTION
     Route: 048
  12. TRAZODONE HCL [Concomitant]
     Indication: SLEEP DISORDER
     Route: 048
  13. FEXOFENADINE [Concomitant]
     Indication: MULTIPLE ALLERGIES
     Dosage: BEDTIME
     Route: 048
  14. FOLIC ACID [Concomitant]
     Indication: NEOPLASM MALIGNANT
     Route: 048
  15. MULTIVITAMINES [Concomitant]
     Indication: MEDICAL DIET
     Route: 048

REACTIONS (6)
  - APPLICATION SITE BLEEDING [None]
  - APPLICATION SITE SCAB [None]
  - GAIT DISTURBANCE [None]
  - GOUT [None]
  - INADEQUATE ANALGESIA [None]
  - WRONG TECHNIQUE IN DRUG USAGE PROCESS [None]
